FAERS Safety Report 5652127-4 (Version None)
Quarter: 2008Q1

REPORT INFORMATION
  Report Type: 
  Country: None (occurrence: None)
  Receive Date: 20080131
  Receipt Date: 20071128
  Transmission Date: 20080703
  Serious: No
  Sender: FDA-Public Use
  Company Number: US200710006598

PATIENT
  Age: 72 Year
  Sex: Female
  Weight: 73.5 kg

DRUGS (7)
  1. BYETTA [Suspect]
     Indication: TYPE 2 DIABETES MELLITUS
     Dosage: 5 UG, 2/D, SUBCUTANEOUS
     Route: 058
     Dates: start: 20070101
  2. BYETTA [Suspect]
  3. LANTUS [Concomitant]
  4. LASIX [Concomitant]
  5. ALDACTONE [Concomitant]
  6. COREG [Concomitant]
  7. ALTACE [Concomitant]

REACTIONS (10)
  - ABDOMINAL PAIN LOWER [None]
  - BLOOD GLUCOSE DECREASED [None]
  - BLOOD GLUCOSE INCREASED [None]
  - CHILLS [None]
  - CYSTITIS [None]
  - DIZZINESS [None]
  - KIDNEY INFECTION [None]
  - PYREXIA [None]
  - RENAL PAIN [None]
  - WHITE BLOOD CELL COUNT ABNORMAL [None]
